FAERS Safety Report 16654124 (Version 2)
Quarter: 2020Q1

REPORT INFORMATION
  Report Type: Report from Study
  Country: US (occurrence: US)
  Receive Date: 20190731
  Receipt Date: 20200211
  Transmission Date: 20200409
  Serious: No
  Sender: FDA-Public Use
  Company Number: US-SA-2019SA204675

PATIENT
  Age: 13 Year
  Sex: Male
  Weight: 47.62 kg

DRUGS (2)
  1. DUPILUMAB [Suspect]
     Active Substance: DUPILUMAB
     Indication: ECZEMA
     Dosage: 300 MG, QOW
     Route: 058
  2. DUPILUMAB [Suspect]
     Active Substance: DUPILUMAB
     Indication: DERMATITIS ATOPIC
     Dosage: 600 MG, 1X
     Route: 058
     Dates: start: 20190722, end: 20190722

REACTIONS (5)
  - Incorrect dose administered [Unknown]
  - Injection site pain [Unknown]
  - Headache [Unknown]
  - Injection site warmth [Unknown]
  - Fatigue [Unknown]

NARRATIVE: CASE EVENT DATE: 201907
